FAERS Safety Report 21760290 (Version 1)
Quarter: 2022Q4

REPORT INFORMATION
  Report Type: Report from Study
  Country: US (occurrence: US)
  Receive Date: 20221221
  Receipt Date: 20221221
  Transmission Date: 20230112
  Serious: Yes (Other)
  Sender: FDA-Public Use
  Company Number: US-002147023-NVSC2022US292297

PATIENT
  Sex: Female

DRUGS (1)
  1. AFINITOR [Suspect]
     Active Substance: EVEROLIMUS
     Indication: Product used for unknown indication
     Dosage: UNK
     Route: 065

REACTIONS (22)
  - Carcinoid tumour [Unknown]
  - Hypothyroidism [Unknown]
  - Hepatic lesion [Unknown]
  - Hepatic mass [Unknown]
  - Night sweats [Unknown]
  - Hyperhidrosis [Unknown]
  - Cystitis [Unknown]
  - Eye discharge [Unknown]
  - Paraesthesia [Unknown]
  - Seasonal allergy [Unknown]
  - Anxiety [Unknown]
  - Depression [Unknown]
  - Sleep disorder [Unknown]
  - Vitamin B12 deficiency [Unknown]
  - Iron deficiency [Unknown]
  - Anaemia [Unknown]
  - Transaminases increased [Unknown]
  - Diarrhoea [Unknown]
  - Hypertension [Unknown]
  - Fatigue [Unknown]
  - Stomatitis [Unknown]
  - Blood lactate dehydrogenase increased [Unknown]
